FAERS Safety Report 8702249 (Version 2)
Quarter: 2013Q2

REPORT INFORMATION
  Report Type: Spontaneous
  Country: JP (occurrence: JP)
  Receive Date: 20120803
  Receipt Date: 20130607
  Transmission Date: 20140414
  Serious: Yes (Death, Life-Threatening)
  Sender: FDA-Public Use
  Company Number: JP-JNJFOC-20120800492

PATIENT
  Age: 40 Year
  Sex: Male
  Weight: 50 kg

DRUGS (8)
  1. REMICADE [Suspect]
     Indication: CROHN^S DISEASE
     Route: 042
     Dates: start: 20031127
  2. REMICADE [Suspect]
     Indication: CROHN^S DISEASE
     Route: 042
     Dates: start: 20050909
  3. REMICADE [Suspect]
     Indication: CROHN^S DISEASE
     Route: 042
     Dates: start: 20120222
  4. REMICADE [Suspect]
     Indication: CROHN^S DISEASE
     Route: 042
     Dates: start: 20110907
  5. GASTER [Concomitant]
     Indication: GASTROINTESTINAL DISORDER THERAPY
     Route: 048
  6. PENTASA [Concomitant]
     Indication: CROHN^S DISEASE
     Route: 048
  7. SALAZOPYRIN [Concomitant]
     Indication: CROHN^S DISEASE
     Route: 048
  8. HUMIRA [Concomitant]
     Indication: CROHN^S DISEASE
     Dosage: 051
     Route: 065
     Dates: start: 201204

REACTIONS (1)
  - Malignant anorectal neoplasm [Fatal]
